FAERS Safety Report 5379377-9 (Version None)
Quarter: 2007Q3

REPORT INFORMATION
  Report Type: 
  Country: None (occurrence: None)
  Receive Date: 20070703
  Receipt Date: 20070626
  Transmission Date: 20080115
  Serious: Yes (Life-Threatening, Hospitalization)
  Sender: FDA-Public Use
  Company Number: S07-USA-02750-01

PATIENT
  Age: 76 Year
  Sex: Female

DRUGS (7)
  1. NAMENDA [Suspect]
     Dates: start: 20070601
  2. LUNESTA [Suspect]
     Dates: start: 20070607
  3. ARICEPT [Suspect]
     Dates: start: 20070601
  4. ULTRAM [Concomitant]
  5. LORTAB (HYDROCODONE) [Concomitant]
  6. NAPROSYN [Concomitant]
  7. KLONOPIN [Concomitant]

REACTIONS (12)
  - CATATONIA [None]
  - CONFUSIONAL STATE [None]
  - CONVULSION [None]
  - DEPRESSED LEVEL OF CONSCIOUSNESS [None]
  - DISORIENTATION [None]
  - ENCEPHALITIS [None]
  - FEELING ABNORMAL [None]
  - GENERAL PHYSICAL HEALTH DETERIORATION [None]
  - HYPERTENSIVE CRISIS [None]
  - INFECTION [None]
  - MENINGITIS VIRAL [None]
  - SPEECH DISORDER [None]
